FAERS Safety Report 6519787-7 (Version None)
Quarter: 2009Q4

REPORT INFORMATION
  Report Type: 
  Country: None (occurrence: None)
  Receive Date: 20091228
  Receipt Date: 20091228
  Transmission Date: 20100525
  Serious: Yes (Other)
  Sender: FDA-Public Use
  Company Number: None

PATIENT
  Sex: Male

DRUGS (1)
  1. HUMIRA [Suspect]
     Indication: RHEUMATOID ARTHRITIS
     Dosage: 40MG  QOW SQ
     Route: 058
     Dates: start: 20091101

REACTIONS (3)
  - CONDITION AGGRAVATED [None]
  - INCISION SITE CELLULITIS [None]
  - SKIN LESION [None]
